FAERS Safety Report 6445682-8 (Version None)
Quarter: 2009Q4

REPORT INFORMATION
  Report Type: 
  Country: None (occurrence: None)
  Receive Date: 20091118
  Receipt Date: 20091118
  Transmission Date: 20100525
  Serious: Yes (Death)
  Sender: FDA-Public Use
  Company Number: None

PATIENT
  Age: 94 Year
  Sex: Female
  Weight: 49.8957 kg

DRUGS (1)
  1. ALLOPURINOL [Suspect]
     Indication: BLOOD URIC ACID
     Dosage: 100MG 1 TAB DAY PO
     Route: 048
     Dates: start: 20090911, end: 20091020

REACTIONS (2)
  - STEVENS-JOHNSON SYNDROME [None]
  - TOXIC EPIDERMAL NECROLYSIS [None]
